FAERS Safety Report 9765125 (Version 1)
Quarter: 2013Q4

REPORT INFORMATION
  Report Type: Spontaneous
  Country: US (occurrence: None)
  Receive Date: 20131213
  Receipt Date: 20131213
  Transmission Date: 20140711
  Serious: Yes (Other)
  Sender: FDA-Public Use
  Company Number: 2013SA030306

PATIENT
  Sex: Female

DRUGS (1)
  1. ICY HOT [Suspect]
     Indication: PRODUCT USED FOR UNKNOWN INDICATION
     Dates: start: 20100217

REACTIONS (7)
  - Scab [None]
  - Application site burn [None]
  - Chemical injury [None]
  - Burns second degree [None]
  - Application site erythema [None]
  - Frustration [None]
  - Depressed mood [None]
